FAERS Safety Report 11752217 (Version 7)
Quarter: 2016Q4

REPORT INFORMATION
  Report Type: Spontaneous
  Country: US (occurrence: US)
  Receive Date: 20151118
  Receipt Date: 20161026
  Transmission Date: 20170206
  Serious: Yes (Hospitalization, Other)
  Sender: FDA-Public Use
  Company Number: US-GLAXOSMITHKLINE-US2015161102

PATIENT
  Age: 61 Year
  Sex: Female
  Weight: 54.42 kg

DRUGS (13)
  1. MILK THISTLE [Concomitant]
     Active Substance: MILK THISTLE
  2. WHEY POWDER [Concomitant]
  3. LAMOTRIGINE. [Suspect]
     Active Substance: LAMOTRIGINE
     Indication: DEPRESSION
     Dosage: 100 MG, QD
  4. LAMOTRIGINE. [Suspect]
     Active Substance: LAMOTRIGINE
     Dosage: 50 MG, QD
  5. SALT [Concomitant]
     Active Substance: SODIUM CHLORIDE
     Indication: BLOOD ANTIDIURETIC HORMONE DECREASED
  6. IODINE. [Concomitant]
     Active Substance: IODINE
  7. LAMICTAL [Suspect]
     Active Substance: LAMOTRIGINE
     Indication: PRODUCT USED FOR UNKNOWN INDICATION
  8. LAMOTRIGINE. [Suspect]
     Active Substance: LAMOTRIGINE
     Dosage: 100 MG, QD
     Dates: start: 201610
  9. NATURAL THYROID [Concomitant]
  10. SALT [Concomitant]
     Active Substance: SODIUM CHLORIDE
     Indication: BLOOD SODIUM DECREASED
  11. LAMOTRIGINE. [Suspect]
     Active Substance: LAMOTRIGINE
     Indication: BIPOLAR DISORDER
     Dosage: 200 MG, QD
     Route: 048
     Dates: end: 20151128
  12. LAMOTRIGINE. [Suspect]
     Active Substance: LAMOTRIGINE
     Indication: AFFECTIVE DISORDER
     Dosage: 50 MG, QD
     Dates: start: 20151223
  13. LAMOTRIGINE. [Suspect]
     Active Substance: LAMOTRIGINE
     Dosage: 100 MG, QD
     Dates: end: 201610

REACTIONS (19)
  - Parkinson^s disease [Unknown]
  - Mental disorder [Unknown]
  - Tongue disorder [Recovered/Resolved]
  - Liver function test abnormal [Unknown]
  - Faeces pale [Recovered/Resolved]
  - Oral pain [Recovering/Resolving]
  - Blood sodium decreased [Unknown]
  - Stomatitis [Recovered/Resolved]
  - Drug ineffective [Unknown]
  - Depressed mood [Unknown]
  - Hypothyroidism [Recovered/Resolved]
  - Electroconvulsive therapy [Unknown]
  - Blood antidiuretic hormone decreased [Unknown]
  - Oedema peripheral [Recovering/Resolving]
  - Musculoskeletal disorder [Recovering/Resolving]
  - Impaired healing [Unknown]
  - Crying [Unknown]
  - Respiratory tract congestion [Unknown]
  - Urine output decreased [Recovered/Resolved]

NARRATIVE: CASE EVENT DATE: 20150827
